FAERS Safety Report 13706741 (Version 1)
Quarter: 2017Q2

REPORT INFORMATION
  Report Type: Spontaneous
  Country: US (occurrence: US)
  Receive Date: 20170629
  Receipt Date: 20170629
  Transmission Date: 20170830
  Serious: Yes (Hospitalization)
  Sender: FDA-Public Use
  Company Number: None

PATIENT
  Age: 76 Year
  Sex: Male

DRUGS (1)
  1. HYDROCHLOROTHIAZIDE. [Suspect]
     Active Substance: HYDROCHLOROTHIAZIDE
     Indication: HYPERTENSION
     Route: 048
     Dates: end: 20170415

REACTIONS (8)
  - Lipase increased [None]
  - Pancreatitis acute [None]
  - Abdominal pain [None]
  - Constipation [None]
  - Sinus tachycardia [None]
  - Abdominal distension [None]
  - Acute kidney injury [None]
  - Urinary retention [None]

NARRATIVE: CASE EVENT DATE: 20170415
